FAERS Safety Report 11195408 (Version 1)
Quarter: 2015Q2

REPORT INFORMATION
  Report Type: Report from Study
  Country: US (occurrence: None)
  Receive Date: 20150603
  Receipt Date: 20150603
  Transmission Date: 20150821
  Serious: No
  Sender: FDA-Public Use
  Company Number: 2014TASUS000519

PATIENT
  Age: 63 Year
  Sex: Male
  Weight: 119.7 kg

DRUGS (15)
  1. DOCUSATE [Concomitant]
     Active Substance: DOCUSATE
  2. FLONASE [Concomitant]
     Active Substance: FLUTICASONE PROPIONATE
  3. ALBUTEROL (SALBUTAMOL SULFATE) [Concomitant]
  4. NORVASC [Concomitant]
     Active Substance: AMLODIPINE BESYLATE
  5. RIFAMPIN (RIFAMPIN) [Suspect]
     Active Substance: RIFAMPIN
     Indication: STAPHYLOCOCCAL INFECTION
     Dosage: 600 MG, QD (TAKE 2 - 300MG TABS)
     Route: 048
     Dates: start: 20140908, end: 20150125
  6. RIFAMPIN (RIFAMPIN) [Suspect]
     Active Substance: RIFAMPIN
     Indication: DEVICE RELATED INFECTION
     Dosage: 600 MG, QD (TAKE 2 - 300MG TABS)
     Route: 048
     Dates: start: 20140908, end: 20150125
  7. MIRTAZAPINE. [Concomitant]
     Active Substance: MIRTAZAPINE
  8. BUPROPION HCL (BUPROPION HYDROCHLORIDE) [Concomitant]
     Active Substance: BUPROPION HYDROCHLORIDE
  9. CIPROFLOXACIN (CIPROFLOXACIN HYDROCHLORIDE) [Concomitant]
  10. TRAZODONE [Concomitant]
     Active Substance: TRAZODONE HYDROCHLORIDE
  11. BENADRYL [Suspect]
     Active Substance: DIPHENHYDRAMINE HYDROCHLORIDE
     Indication: PRODUCT USED FOR UNKNOWN INDICATION
  12. PRILOSEC (OMEPRAZOLE) [Concomitant]
     Active Substance: OMEPRAZOLE MAGNESIUM
  13. SENNA [Concomitant]
     Active Substance: SENNA LEAF\SENNOSIDES\SENNOSIDES A AND B
  14. VICODIN [Concomitant]
     Active Substance: ACETAMINOPHEN\HYDROCODONE BITARTRATE
  15. HETLIOZ [Suspect]
     Active Substance: TASIMELTEON
     Indication: CIRCADIAN RHYTHM SLEEP DISORDER
     Route: 048
     Dates: start: 20140829

REACTIONS (6)
  - Headache [None]
  - Drug effect decreased [None]
  - Abnormal dreams [None]
  - Nightmare [None]
  - Drug interaction [None]
  - Diarrhoea [None]

NARRATIVE: CASE EVENT DATE: 20140908
